FAERS Safety Report 8870364 (Version 2)
Quarter: 2012Q4

REPORT INFORMATION
  Report Type: 
  Country: BR (occurrence: BR)
  Receive Date: 20121029
  Receipt Date: 20121228
  Transmission Date: 20130627
  Serious: Yes (Death, Hospitalization)
  Sender: FDA-Public Use
  Company Number: BR-AMGEN-BRASP2012017215

PATIENT
  Age: 70 Year
  Sex: Female
  Weight: 68 kg

DRUGS (4)
  1. ENBREL [Suspect]
     Indication: RHEUMATOID ARTHRITIS
     Dosage: 50 mg, 1x/week
     Route: 058
     Dates: start: 201201, end: 201208
  2. SERENATA [Concomitant]
     Dosage: UNK
  3. STILNOX [Concomitant]
     Dosage: UNK
  4. ANSITEC [Concomitant]
     Dosage: UNK

REACTIONS (8)
  - Sjogren^s syndrome [Fatal]
  - Pyrexia [Fatal]
  - Urinary tract infection [Fatal]
  - Septic shock [Fatal]
  - Pneumonia [Fatal]
  - Application site erythema [Unknown]
  - Application site pruritus [Unknown]
  - Application site induration [Unknown]
